FAERS Safety Report 19183029 (Version 1)
Quarter: 2021Q2

REPORT INFORMATION
  Report Type: Spontaneous
  Country: CA (occurrence: CA)
  Receive Date: 20210426
  Receipt Date: 20210426
  Transmission Date: 20210717
  Serious: Yes (Hospitalization)
  Sender: FDA-Public Use
  Company Number: CA-JNJFOC-20210444650

PATIENT
  Age: 37 Year
  Sex: Female
  Weight: 45 kg

DRUGS (5)
  1. IRON [Concomitant]
     Active Substance: IRON
     Route: 065
  2. INFLIXIMAB, RECOMBINANT [Suspect]
     Active Substance: INFLIXIMAB
     Indication: ANKYLOSING SPONDYLITIS
     Route: 042
  3. CELEBREX [Concomitant]
     Active Substance: CELECOXIB
     Route: 065
  4. IRON [Concomitant]
     Active Substance: IRON
     Route: 065
  5. DICLOFENAC [Concomitant]
     Active Substance: DICLOFENAC
     Route: 065

REACTIONS (8)
  - COVID-19 [Unknown]
  - Musculoskeletal chest pain [Unknown]
  - Off label use [Unknown]
  - Costochondritis [Unknown]
  - Bronchitis [Unknown]
  - Intentional product use issue [Unknown]
  - Dizziness [Unknown]
  - Headache [Unknown]
